FAERS Safety Report 9638610 (Version 2)
Quarter: 2014Q1

REPORT INFORMATION
  Report Type: Spontaneous
  Country: US (occurrence: US)
  Receive Date: 20131022
  Receipt Date: 20140122
  Transmission Date: 20141002
  Serious: No
  Sender: FDA-Public Use
  Company Number: US-BRISTOL-MYERS SQUIBB COMPANY-19445584

PATIENT
  Age: 81 Year
  Sex: Female
  Weight: 48.07 kg

DRUGS (12)
  1. ELIQUIS [Suspect]
     Indication: ATRIAL FIBRILLATION
     Route: 048
  2. COUMADIN [Suspect]
  3. LASIX [Concomitant]
  4. AMIODARONE [Concomitant]
  5. TOPROL [Concomitant]
  6. DIGOXIN [Concomitant]
  7. SYMBICORT [Concomitant]
  8. SPIRIVA [Concomitant]
  9. ALBUTEROL [Concomitant]
  10. LEVOTHYROXINE [Concomitant]
  11. CRESTOR [Concomitant]
  12. LOSARTAN [Concomitant]

REACTIONS (4)
  - Contusion [Recovering/Resolving]
  - Asthenia [Recovering/Resolving]
  - Dyspnoea [Recovering/Resolving]
  - Drug dose omission [Recovering/Resolving]
